FAERS Safety Report 5347508-2 (Version None)
Quarter: 2007Q2

REPORT INFORMATION
  Report Type: 
  Country: None (occurrence: None)
  Receive Date: 20070606
  Receipt Date: 20070524
  Transmission Date: 20071010
  Serious: Yes (Hospitalization)
  Sender: FDA-Public Use
  Company Number: CH-PURDUE-DEU_2007_0003352

PATIENT
  Age: 86 Year
  Sex: Male

DRUGS (9)
  1. OXYGESIC 10 MG [Suspect]
     Indication: PAIN
     Dosage: 5 MG, BID
     Route: 048
     Dates: start: 20070201, end: 20070423
  2. SINTROM [Concomitant]
  3. NEXIUM [Concomitant]
  4. MODURETIC 5-50 [Concomitant]
  5. AMIODARON-MEPHA [Concomitant]
  6. TORASIS [Concomitant]
  7. ZOLOFT [Concomitant]
  8. DAFALGAN [Concomitant]
  9. SERESTA [Concomitant]

REACTIONS (3)
  - CONFUSIONAL STATE [None]
  - HYPOKINESIA [None]
  - SOMNOLENCE [None]
